FAERS Safety Report 5118458-1 (Version None)
Quarter: 2006Q4

REPORT INFORMATION
  Report Type: 
  Country: None (occurrence: None)
  Receive Date: 20061002
  Receipt Date: 20060616
  Transmission Date: 20070319
  Serious: Yes (Death, Life-Threatening)
  Sender: FDA-Public Use
  Company Number: JP-BAYER-200610807BYL

PATIENT
  Age: 80 Year
  Sex: Male
  Weight: 59 kg

DRUGS (5)
  1. AVELOX [Suspect]
     Indication: BRONCHITIS ACUTE
     Dosage: TOTAL DAILY DOSE: 400 MG  UNIT DOSE: 400 MG
     Route: 048
     Dates: start: 20060528, end: 20060603
  2. ALLOPURINOL [Suspect]
     Indication: GOUT
     Dosage: TOTAL DAILY DOSE: 200 MG  UNIT DOSE: 100 MG
     Route: 048
     Dates: start: 20030714, end: 20060606
  3. URALYT-U [Concomitant]
     Dosage: TOTAL DAILY DOSE: 2 G
     Route: 048
     Dates: start: 20030714, end: 20060606
  4. PREDNISOLONE [Concomitant]
     Dosage: TOTAL DAILY DOSE: 5 MG  UNIT DOSE: 5 MG
     Route: 048
     Dates: start: 20060307, end: 20060606
  5. PREDNISOLONE [Concomitant]
     Dosage: TOTAL DAILY DOSE: 2 MG  UNIT DOSE: 1 MG
     Route: 048
     Dates: start: 20060307, end: 20060606

REACTIONS (7)
  - BRONCHITIS ACUTE [None]
  - INTERSTITIAL LUNG DISEASE [None]
  - NASOPHARYNGITIS [None]
  - PNEUMOTHORAX [None]
  - POLYMYALGIA RHEUMATICA [None]
  - TREATMENT NONCOMPLIANCE [None]
  - VASCULITIS [None]
